FAERS Safety Report 5113799-6 (Version None)
Quarter: 2006Q3

REPORT INFORMATION
  Report Type: 
  Country: None (occurrence: None)
  Receive Date: 20060921
  Receipt Date: 20060919
  Transmission Date: 20061208
  Serious: Yes (Death, Life-Threatening, Hospitalization)
  Sender: FDA-Public Use
  Company Number: HQWYE033815DEC05

PATIENT
  Age: 46 Year
  Sex: Male
  Weight: 82.63 kg

DRUGS (1)
  1. MYLOTARG [Suspect]
     Indication: ACUTE MYELOID LEUKAEMIA
     Dosage: A SINGLE 18.8 MG DOSE, INTRAVENOUS
     Route: 042
     Dates: start: 20051202, end: 20051202

REACTIONS (6)
  - BACTERIAL INFECTION [None]
  - BRONCHOPULMONARY ASPERGILLOSIS [None]
  - HERPES SIMPLEX [None]
  - NEUTROPENIA [None]
  - RESPIRATORY DISTRESS [None]
  - WHITE BLOOD CELL COUNT DECREASED [None]
